FAERS Safety Report 10025578 (Version 1)
Quarter: 2014Q1

REPORT INFORMATION
  Report Type: Spontaneous
  Country: US (occurrence: None)
  Receive Date: 20140304
  Receipt Date: 20140304
  Transmission Date: 20141002
  Serious: Yes (Hospitalization, Other)
  Sender: FDA-Public Use
  Company Number: RB-61474-2013

PATIENT
  Age: 25 Year
  Sex: Female

DRUGS (1)
  1. SUBOXONE [Suspect]
     Indication: DRUG DEPENDENCE
     Dosage: SUBOXONE FILM SUBLIINGUAL), (SUBOXONE FILM; TAPERING DOWN TO 2 MG SUBLINGUAL)
     Dates: start: 2011, end: 20130930

REACTIONS (4)
  - Drug withdrawal syndrome [None]
  - Nausea [None]
  - Vomiting [None]
  - Dehydration [None]
